FAERS Safety Report 21584465 (Version 2)
Quarter: 2022Q4

REPORT INFORMATION
  Report Type: Spontaneous
  Country: DE (occurrence: None)
  Receive Date: 20221111
  Receipt Date: 20221223
  Transmission Date: 20230112
  Serious: Yes (Life-Threatening, Hospitalization)
  Sender: FDA-Public Use
  Company Number: DE-ROCHE-3217703

PATIENT
  Age: 70 Year
  Sex: Female
  Weight: 120 kg

DRUGS (8)
  1. TOCILIZUMAB [Suspect]
     Active Substance: TOCILIZUMAB
     Indication: Rheumatoid arthritis
     Route: 058
     Dates: start: 20200109
  2. PREDNISOLONE [Concomitant]
     Active Substance: PREDNISOLONE
     Indication: Rheumatoid arthritis
  3. BISOPROLOL [Concomitant]
     Active Substance: BISOPROLOL
  4. TORSEMIDE [Concomitant]
     Active Substance: TORSEMIDE
  5. SIMVASTATIN [Concomitant]
     Active Substance: SIMVASTATIN
  6. PANTOPRAZOLE SODIUM [Concomitant]
     Active Substance: PANTOPRAZOLE SODIUM
  7. MARCUMAR [Concomitant]
     Active Substance: PHENPROCOUMON
  8. ISONIAZID [Concomitant]
     Active Substance: ISONIAZID
     Dates: start: 20191212, end: 20200920

REACTIONS (1)
  - Fournier^s gangrene [Recovered/Resolved with Sequelae]

NARRATIVE: CASE EVENT DATE: 20220727
